FAERS Safety Report 11053422 (Version 1)
Quarter: 2015Q2

REPORT INFORMATION
  Report Type: Report from Study
  Country: US (occurrence: US)
  Receive Date: 20150421
  Receipt Date: 20150421
  Transmission Date: 20150821
  Serious: Yes (Hospitalization, Other)
  Sender: FDA-Public Use
  Company Number: US-EXELIXIS-CABO-15005222

PATIENT
  Age: 69 Year
  Sex: Female

DRUGS (13)
  1. LEVETIRACETAM. [Concomitant]
     Active Substance: LEVETIRACETAM
  2. XANAX [Concomitant]
     Active Substance: ALPRAZOLAM
  3. BABY ASPIRIN [Concomitant]
     Active Substance: ASPIRIN
  4. MARIJUANA [Concomitant]
     Active Substance: CANNABIS SATIVA SUBSP. INDICA TOP
  5. CABOZANTINIB [Suspect]
     Active Substance: CABOZANTINIB
     Indication: RENAL CANCER
     Dosage: 60 MG, QD
     Route: 048
     Dates: start: 20150206, end: 201502
  6. CABOZANTINIB [Suspect]
     Active Substance: CABOZANTINIB
     Dosage: 60 MG, QD
     Route: 048
     Dates: start: 20150214, end: 20150319
  7. DIPHENHYDRAMINE [Concomitant]
     Active Substance: DIPHENHYDRAMINE
  8. LISINOPRIL. [Concomitant]
     Active Substance: LISINOPRIL
  9. PREDNISONE. [Concomitant]
     Active Substance: PREDNISONE
  10. PREMARIN [Concomitant]
     Active Substance: ESTROGENS, CONJUGATED
  11. VITAMIN D [Concomitant]
     Active Substance: CHOLECALCIFEROL
  12. ZOFRAN [Concomitant]
     Active Substance: ONDANSETRON HYDROCHLORIDE
  13. RITALIN [Concomitant]
     Active Substance: METHYLPHENIDATE HYDROCHLORIDE

REACTIONS (27)
  - Dry mouth [Unknown]
  - Nasopharyngitis [Unknown]
  - Memory impairment [Unknown]
  - Haemoptysis [Recovered/Resolved]
  - Off label use [Unknown]
  - Hepatic failure [Unknown]
  - Hypertension [Not Recovered/Not Resolved]
  - Skin ulcer [Unknown]
  - Oedema peripheral [Unknown]
  - Oral candidiasis [Unknown]
  - Back pain [Unknown]
  - Bleeding varicose vein [Unknown]
  - Pyrexia [Unknown]
  - Cystitis [Unknown]
  - Oropharyngeal pain [Unknown]
  - Pruritus [Unknown]
  - Hepatic enzyme abnormal [Unknown]
  - Hypotension [Unknown]
  - Kidney infection [Unknown]
  - Influenza like illness [Unknown]
  - Abdominal discomfort [Unknown]
  - Joint swelling [Recovering/Resolving]
  - Skin discolouration [Unknown]
  - Rash [Unknown]
  - Mental status changes [Unknown]
  - Palmar-plantar erythrodysaesthesia syndrome [Not Recovered/Not Resolved]
  - Blister [Unknown]

NARRATIVE: CASE EVENT DATE: 2015
